FAERS Safety Report 25040122 (Version 1)
Quarter: 2025Q1

REPORT INFORMATION
  Report Type: Spontaneous
  Country: CA (occurrence: CA)
  Receive Date: 20250305
  Receipt Date: 20250305
  Transmission Date: 20250409
  Serious: Yes (Other)
  Sender: CELLTRION
  Company Number: CA-CELLTRION INC.-2025CA005100

PATIENT

DRUGS (338)
  1. ADALIMUMAB [Suspect]
     Active Substance: ADALIMUMAB
     Indication: Crohn^s disease
     Route: 065
  2. ADALIMUMAB [Suspect]
     Active Substance: ADALIMUMAB
     Indication: Colitis ulcerative
  3. ACETAMINOPHEN [Suspect]
     Active Substance: ACETAMINOPHEN
     Indication: Ill-defined disorder
     Route: 065
  4. ASPIRIN [Suspect]
     Active Substance: ASPIRIN
     Indication: Product used for unknown indication
     Route: 065
  5. ASPIRIN [Suspect]
     Active Substance: ASPIRIN
     Route: 065
  6. ADALIMUMAB [Suspect]
     Active Substance: ADALIMUMAB
     Indication: Crohn^s disease
     Route: 042
  7. ADALIMUMAB [Suspect]
     Active Substance: ADALIMUMAB
     Route: 048
  8. ADALIMUMAB [Suspect]
     Active Substance: ADALIMUMAB
     Route: 058
  9. ADALIMUMAB [Suspect]
     Active Substance: ADALIMUMAB
     Indication: Crohn^s disease
     Route: 058
  10. ADALIMUMAB [Suspect]
     Active Substance: ADALIMUMAB
     Indication: Colitis ulcerative
  11. ALBENDAZOLE [Suspect]
     Active Substance: ALBENDAZOLE
     Indication: Deep vein thrombosis
     Route: 042
  12. ALBENDAZOLE [Suspect]
     Active Substance: ALBENDAZOLE
     Indication: Colitis ulcerative
  13. ASACOL [Suspect]
     Active Substance: MESALAMINE
     Indication: Colitis ulcerative
     Route: 065
  14. ASACOL [Suspect]
     Active Substance: MESALAMINE
     Route: 065
  15. ASACOL [Suspect]
     Active Substance: MESALAMINE
     Route: 065
  16. ASACOL [Suspect]
     Active Substance: MESALAMINE
     Route: 065
  17. ASACOL [Suspect]
     Active Substance: MESALAMINE
     Route: 065
  18. ASACOL [Suspect]
     Active Substance: MESALAMINE
     Indication: Colitis ulcerative
     Route: 065
  19. ASACOL [Suspect]
     Active Substance: MESALAMINE
     Route: 065
  20. ASACOL [Suspect]
     Active Substance: MESALAMINE
     Route: 065
  21. ASACOL [Suspect]
     Active Substance: MESALAMINE
     Route: 065
  22. ASACOL [Suspect]
     Active Substance: MESALAMINE
     Route: 065
  23. ASACOL [Suspect]
     Active Substance: MESALAMINE
     Route: 065
  24. ASACOL [Suspect]
     Active Substance: MESALAMINE
     Route: 065
  25. ASACOL [Suspect]
     Active Substance: MESALAMINE
     Route: 065
  26. ASACOL [Suspect]
     Active Substance: MESALAMINE
     Route: 065
  27. ASACOL [Suspect]
     Active Substance: MESALAMINE
     Indication: Colitis ulcerative
     Route: 065
  28. ASACOL [Suspect]
     Active Substance: MESALAMINE
     Route: 065
  29. ASACOL [Suspect]
     Active Substance: MESALAMINE
     Route: 065
  30. ASACOL [Suspect]
     Active Substance: MESALAMINE
     Route: 065
  31. ASACOL [Suspect]
     Active Substance: MESALAMINE
     Route: 065
  32. ASACOL [Suspect]
     Active Substance: MESALAMINE
     Route: 065
  33. ASACOL [Suspect]
     Active Substance: MESALAMINE
     Route: 065
  34. ASACOL [Suspect]
     Active Substance: MESALAMINE
     Route: 065
  35. ASACOL [Suspect]
     Active Substance: MESALAMINE
     Route: 065
  36. ASACOL [Suspect]
     Active Substance: MESALAMINE
     Indication: Colitis ulcerative
     Route: 065
  37. BUDESONIDE [Suspect]
     Active Substance: BUDESONIDE
     Indication: Colitis ulcerative
     Route: 048
  38. BUDESONIDE [Suspect]
     Active Substance: BUDESONIDE
     Route: 048
  39. BUDESONIDE [Suspect]
     Active Substance: BUDESONIDE
     Route: 048
  40. BUDESONIDE [Suspect]
     Active Substance: BUDESONIDE
     Route: 048
  41. BUDESONIDE [Suspect]
     Active Substance: BUDESONIDE
     Route: 048
  42. BUDESONIDE [Suspect]
     Active Substance: BUDESONIDE
     Route: 048
  43. BUDESONIDE [Suspect]
     Active Substance: BUDESONIDE
     Route: 048
  44. BUDESONIDE [Suspect]
     Active Substance: BUDESONIDE
     Route: 048
  45. BUDESONIDE [Suspect]
     Active Substance: BUDESONIDE
     Route: 048
  46. BUDESONIDE [Suspect]
     Active Substance: BUDESONIDE
     Route: 065
  47. BUDESONIDE [Suspect]
     Active Substance: BUDESONIDE
     Route: 048
  48. BUDESONIDE [Suspect]
     Active Substance: BUDESONIDE
     Route: 065
  49. BUDESONIDE [Suspect]
     Active Substance: BUDESONIDE
     Route: 065
  50. BUDESONIDE [Suspect]
     Active Substance: BUDESONIDE
     Route: 065
  51. BUDESONIDE [Suspect]
     Active Substance: BUDESONIDE
     Route: 065
  52. BUDESONIDE [Suspect]
     Active Substance: BUDESONIDE
     Route: 048
  53. BUDESONIDE [Suspect]
     Active Substance: BUDESONIDE
     Route: 048
  54. BUDESONIDE [Suspect]
     Active Substance: BUDESONIDE
     Route: 048
  55. BUDESONIDE [Suspect]
     Active Substance: BUDESONIDE
     Route: 048
  56. BUDESONIDE [Suspect]
     Active Substance: BUDESONIDE
     Route: 048
  57. BUDESONIDE [Suspect]
     Active Substance: BUDESONIDE
     Indication: Colitis ulcerative
     Route: 048
  58. BUDESONIDE [Suspect]
     Active Substance: BUDESONIDE
     Route: 048
  59. BUDESONIDE [Suspect]
     Active Substance: BUDESONIDE
     Indication: Colitis ulcerative
     Route: 048
  60. BUDESONIDE [Suspect]
     Active Substance: BUDESONIDE
     Route: 048
  61. BUDESONIDE [Suspect]
     Active Substance: BUDESONIDE
     Route: 048
  62. BUDESONIDE [Suspect]
     Active Substance: BUDESONIDE
     Route: 048
  63. BUDESONIDE [Suspect]
     Active Substance: BUDESONIDE
     Indication: Colitis ulcerative
     Route: 048
  64. BUDESONIDE [Suspect]
     Active Substance: BUDESONIDE
     Route: 048
  65. BUDESONIDE [Suspect]
     Active Substance: BUDESONIDE
     Route: 048
  66. BUDESONIDE [Suspect]
     Active Substance: BUDESONIDE
     Route: 048
  67. CANDESARTAN [Suspect]
     Active Substance: CANDESARTAN
     Indication: Product used for unknown indication
     Route: 048
  68. AZD-1222 [Suspect]
     Active Substance: AZD-1222
     Indication: COVID-19 immunisation
     Route: 065
  69. AZD-1222 [Suspect]
     Active Substance: AZD-1222
     Route: 065
  70. AZD-1222 [Suspect]
     Active Substance: AZD-1222
     Route: 065
  71. AZD-1222 [Suspect]
     Active Substance: AZD-1222
     Route: 065
  72. AZD-1222 [Suspect]
     Active Substance: AZD-1222
     Route: 065
  73. AZD-1222 [Suspect]
     Active Substance: AZD-1222
     Route: 065
  74. AZD-1222 [Suspect]
     Active Substance: AZD-1222
     Route: 065
  75. AZD-1222 [Suspect]
     Active Substance: AZD-1222
     Route: 065
  76. AZD-1222 [Suspect]
     Active Substance: AZD-1222
     Route: 065
  77. AZD-1222 [Suspect]
     Active Substance: AZD-1222
     Route: 065
  78. AZD-1222 [Suspect]
     Active Substance: AZD-1222
     Route: 065
  79. AZD-1222 [Suspect]
     Active Substance: AZD-1222
     Indication: COVID-19 immunisation
     Route: 065
  80. COMIRNATY (TOZINAMERAN) [Suspect]
     Active Substance: TOZINAMERAN
     Indication: Product used for unknown indication
     Route: 065
  81. CORTIFOAM [Suspect]
     Active Substance: HYDROCORTISONE ACETATE
     Indication: Deep vein thrombosis
     Route: 065
  82. CORTIFOAM [Suspect]
     Active Substance: HYDROCORTISONE ACETATE
     Indication: Crohn^s disease
     Route: 048
  83. CORTIFOAM [Suspect]
     Active Substance: HYDROCORTISONE ACETATE
     Indication: Colitis ulcerative
     Route: 065
  84. CORTIFOAM [Suspect]
     Active Substance: HYDROCORTISONE ACETATE
     Route: 048
  85. CORTIFOAM [Suspect]
     Active Substance: HYDROCORTISONE ACETATE
     Route: 048
  86. CORTIFOAM [Suspect]
     Active Substance: HYDROCORTISONE ACETATE
     Route: 048
  87. CORTIFOAM [Suspect]
     Active Substance: HYDROCORTISONE ACETATE
     Indication: Deep vein thrombosis
     Route: 065
  88. CORTIFOAM [Suspect]
     Active Substance: HYDROCORTISONE ACETATE
     Indication: Crohn^s disease
  89. CORTIFOAM [Suspect]
     Active Substance: HYDROCORTISONE ACETATE
     Indication: Colitis ulcerative
  90. CORTIFOAM [Suspect]
     Active Substance: HYDROCORTISONE ACETATE
     Indication: Deep vein thrombosis
     Route: 065
  91. CORTIFOAM [Suspect]
     Active Substance: HYDROCORTISONE ACETATE
     Indication: Crohn^s disease
  92. CORTIFOAM [Suspect]
     Active Substance: HYDROCORTISONE ACETATE
     Indication: Colitis ulcerative
  93. CORTIFOAM [Suspect]
     Active Substance: HYDROCORTISONE ACETATE
     Indication: Deep vein thrombosis
     Route: 048
  94. CORTIFOAM [Suspect]
     Active Substance: HYDROCORTISONE ACETATE
     Indication: Crohn^s disease
     Route: 048
  95. CORTIFOAM [Suspect]
     Active Substance: HYDROCORTISONE ACETATE
     Indication: Colitis ulcerative
     Route: 048
  96. CORTIFOAM [Suspect]
     Active Substance: HYDROCORTISONE ACETATE
     Route: 065
  97. CORTIFOAM [Suspect]
     Active Substance: HYDROCORTISONE ACETATE
     Indication: Deep vein thrombosis
     Route: 065
  98. CORTIFOAM [Suspect]
     Active Substance: HYDROCORTISONE ACETATE
     Indication: Crohn^s disease
  99. CORTIFOAM [Suspect]
     Active Substance: HYDROCORTISONE ACETATE
     Indication: Colitis ulcerative
  100. CORTIFOAM [Suspect]
     Active Substance: HYDROCORTISONE ACETATE
     Indication: Deep vein thrombosis
     Route: 065
  101. CORTIFOAM [Suspect]
     Active Substance: HYDROCORTISONE ACETATE
     Indication: Crohn^s disease
  102. CORTIFOAM [Suspect]
     Active Substance: HYDROCORTISONE ACETATE
     Indication: Colitis ulcerative
  103. CORTISONE (HYDROCORTISONE) [Suspect]
     Active Substance: HYDROCORTISONE
     Indication: Crohn^s disease
     Route: 042
  104. CORTISONE (HYDROCORTISONE) [Suspect]
     Active Substance: HYDROCORTISONE
     Indication: Colitis ulcerative
     Route: 048
  105. CORTISONE (HYDROCORTISONE) [Suspect]
     Active Substance: HYDROCORTISONE
     Route: 048
  106. CORTISONE (HYDROCORTISONE) [Suspect]
     Active Substance: HYDROCORTISONE
     Route: 048
  107. CORTISONE (HYDROCORTISONE) [Suspect]
     Active Substance: HYDROCORTISONE
     Route: 048
  108. CORTISONE (HYDROCORTISONE) [Suspect]
     Active Substance: HYDROCORTISONE
     Dosage: 6 MILLIGRAM 1 EVERY 1 WEEKS
     Route: 065
  109. CORTISONE (HYDROCORTISONE) [Suspect]
     Active Substance: HYDROCORTISONE
     Dosage: 8 MILLIGRAM 1 EVERY 1 WEEKS
     Route: 065
  110. CORTISONE (HYDROCORTISONE) [Suspect]
     Active Substance: HYDROCORTISONE
     Route: 065
  111. CORTISONE (HYDROCORTISONE) [Suspect]
     Active Substance: HYDROCORTISONE
     Route: 065
  112. CORTISONE (HYDROCORTISONE) [Suspect]
     Active Substance: HYDROCORTISONE
     Route: 065
  113. CORTISONE (HYDROCORTISONE) [Suspect]
     Active Substance: HYDROCORTISONE
     Route: 042
  114. CORTISONE (HYDROCORTISONE) [Suspect]
     Active Substance: HYDROCORTISONE
     Route: 048
  115. CORTISONE (HYDROCORTISONE) [Suspect]
     Active Substance: HYDROCORTISONE
     Route: 048
  116. CORTISONE (HYDROCORTISONE) [Suspect]
     Active Substance: HYDROCORTISONE
     Route: 048
  117. CORTISONE (HYDROCORTISONE) [Suspect]
     Active Substance: HYDROCORTISONE
     Route: 048
  118. CORTISONE (HYDROCORTISONE) [Suspect]
     Active Substance: HYDROCORTISONE
     Route: 048
  119. CORTISONE (HYDROCORTISONE) [Suspect]
     Active Substance: HYDROCORTISONE
     Route: 048
  120. DAPAGLIFLOZIN [Suspect]
     Active Substance: DAPAGLIFLOZIN
     Indication: Ill-defined disorder
     Route: 065
  121. DESOXIMETASONE [Suspect]
     Active Substance: DESOXIMETASONE
     Indication: Crohn^s disease
     Route: 065
  122. DESOXIMETASONE [Suspect]
     Active Substance: DESOXIMETASONE
     Indication: Colitis ulcerative
     Route: 065
  123. DESOXIMETASONE [Suspect]
     Active Substance: DESOXIMETASONE
     Route: 065
  124. DESOXIMETASONE [Suspect]
     Active Substance: DESOXIMETASONE
     Route: 065
  125. ENTYVIO [Suspect]
     Active Substance: VEDOLIZUMAB
     Indication: Deep vein thrombosis
     Route: 042
  126. ENTYVIO [Suspect]
     Active Substance: VEDOLIZUMAB
     Indication: Colitis ulcerative
     Route: 042
  127. ENTYVIO [Suspect]
     Active Substance: VEDOLIZUMAB
     Route: 048
  128. ENTYVIO [Suspect]
     Active Substance: VEDOLIZUMAB
     Indication: Deep vein thrombosis
     Route: 065
  129. ENTYVIO [Suspect]
     Active Substance: VEDOLIZUMAB
     Indication: Colitis ulcerative
  130. ENTYVIO [Suspect]
     Active Substance: VEDOLIZUMAB
     Indication: Deep vein thrombosis
     Route: 042
  131. ENTYVIO [Suspect]
     Active Substance: VEDOLIZUMAB
     Indication: Colitis ulcerative
     Route: 042
  132. ENTYVIO [Suspect]
     Active Substance: VEDOLIZUMAB
     Route: 042
  133. ENTYVIO [Suspect]
     Active Substance: VEDOLIZUMAB
     Route: 048
  134. ENTYVIO [Suspect]
     Active Substance: VEDOLIZUMAB
     Route: 042
  135. ENTYVIO [Suspect]
     Active Substance: VEDOLIZUMAB
     Route: 065
  136. ENTYVIO [Suspect]
     Active Substance: VEDOLIZUMAB
     Route: 065
  137. ENTYVIO [Suspect]
     Active Substance: VEDOLIZUMAB
     Indication: Deep vein thrombosis
     Route: 065
  138. ENTYVIO [Suspect]
     Active Substance: VEDOLIZUMAB
     Indication: Colitis ulcerative
  139. ENTYVIO [Suspect]
     Active Substance: VEDOLIZUMAB
     Indication: Deep vein thrombosis
     Route: 065
  140. ENTYVIO [Suspect]
     Active Substance: VEDOLIZUMAB
     Indication: Colitis ulcerative
     Route: 042
  141. ENTYVIO [Suspect]
     Active Substance: VEDOLIZUMAB
     Route: 065
  142. ENTYVIO [Suspect]
     Active Substance: VEDOLIZUMAB
     Route: 048
  143. ENTYVIO [Suspect]
     Active Substance: VEDOLIZUMAB
     Route: 042
  144. ENTYVIO [Suspect]
     Active Substance: VEDOLIZUMAB
     Route: 065
  145. ENTYVIO [Suspect]
     Active Substance: VEDOLIZUMAB
     Route: 042
  146. ENTYVIO [Suspect]
     Active Substance: VEDOLIZUMAB
     Route: 048
  147. ENTYVIO [Suspect]
     Active Substance: VEDOLIZUMAB
     Route: 048
  148. ENTYVIO [Suspect]
     Active Substance: VEDOLIZUMAB
     Route: 065
  149. ENTYVIO [Suspect]
     Active Substance: VEDOLIZUMAB
     Route: 065
  150. EPINEPHRINE HYDROCHLORIDE [Suspect]
     Active Substance: EPINEPHRINE HYDROCHLORIDE
     Indication: Product used for unknown indication
     Route: 065
  151. ESCITALOPRAM [Suspect]
     Active Substance: ESCITALOPRAM OXALATE
     Indication: Product used for unknown indication
     Route: 065
  152. ESOMEPRAZOLE [Suspect]
     Active Substance: ESOMEPRAZOLE
     Indication: Gastritis
     Route: 065
  153. FELODIPINE [Suspect]
     Active Substance: FELODIPINE
     Indication: Hypertension
     Route: 048
  154. FELODIPINE [Suspect]
     Active Substance: FELODIPINE
     Indication: Hypertension
     Route: 048
  155. FUROSEMIDE [Suspect]
     Active Substance: FUROSEMIDE
     Indication: Product used for unknown indication
     Route: 065
  156. GABAPENTIN [Suspect]
     Active Substance: GABAPENTIN
     Indication: Product used for unknown indication
     Route: 065
  157. GABAPENTIN [Suspect]
     Active Substance: GABAPENTIN
     Indication: Product used for unknown indication
     Route: 065
  158. HUMIRA [Suspect]
     Active Substance: ADALIMUMAB
     Indication: Deep vein thrombosis
     Route: 058
  159. HUMIRA [Suspect]
     Active Substance: ADALIMUMAB
     Indication: Crohn^s disease
  160. HUMIRA [Suspect]
     Active Substance: ADALIMUMAB
     Indication: Colitis ulcerative
  161. HUMIRA [Suspect]
     Active Substance: ADALIMUMAB
     Indication: Deep vein thrombosis
     Route: 065
  162. HUMIRA [Suspect]
     Active Substance: ADALIMUMAB
     Indication: Crohn^s disease
     Route: 048
  163. HUMIRA [Suspect]
     Active Substance: ADALIMUMAB
     Indication: Colitis ulcerative
  164. HUMIRA [Suspect]
     Active Substance: ADALIMUMAB
     Indication: Deep vein thrombosis
     Route: 065
  165. HUMIRA [Suspect]
     Active Substance: ADALIMUMAB
     Indication: Crohn^s disease
  166. HUMIRA [Suspect]
     Active Substance: ADALIMUMAB
     Indication: Colitis ulcerative
  167. HYDROCORTISONE [Suspect]
     Active Substance: HYDROCORTISONE
     Indication: Colitis ulcerative
     Route: 065
  168. HYDROCORTISONE [Suspect]
     Active Substance: HYDROCORTISONE
     Route: 048
  169. HYDROCORTISONE [Suspect]
     Active Substance: HYDROCORTISONE
     Route: 048
  170. HYDROCORTISONE [Suspect]
     Active Substance: HYDROCORTISONE
     Route: 048
  171. HYDROCORTISONE [Suspect]
     Active Substance: HYDROCORTISONE
     Route: 065
  172. HYDROCORTISONE [Suspect]
     Active Substance: HYDROCORTISONE
     Route: 065
  173. HYDROCORTISONE [Suspect]
     Active Substance: HYDROCORTISONE
     Route: 065
  174. HYDROCORTISONE [Suspect]
     Active Substance: HYDROCORTISONE
     Route: 065
  175. HYDROCORTISONE [Suspect]
     Active Substance: HYDROCORTISONE
     Route: 048
  176. HYDROCORTISONE [Suspect]
     Active Substance: HYDROCORTISONE
     Route: 065
  177. HYDROCORTISONE [Suspect]
     Active Substance: HYDROCORTISONE
     Indication: Product used for unknown indication
     Route: 061
  178. INFLIXIMAB [Suspect]
     Active Substance: INFLIXIMAB
     Indication: Crohn^s disease
     Route: 041
  179. INFLIXIMAB [Suspect]
     Active Substance: INFLIXIMAB
     Indication: Colitis ulcerative
     Route: 041
  180. INFLIXIMAB [Suspect]
     Active Substance: INFLIXIMAB
     Route: 041
  181. INFLIXIMAB [Suspect]
     Active Substance: INFLIXIMAB
     Route: 041
  182. INFLIXIMAB [Suspect]
     Active Substance: INFLIXIMAB
     Dosage: 1 EVERY 2 WEEKS
     Route: 041
  183. INFLIXIMAB [Suspect]
     Active Substance: INFLIXIMAB
     Route: 048
  184. INFLIXIMAB [Suspect]
     Active Substance: INFLIXIMAB
     Route: 041
  185. INFLIXIMAB [Suspect]
     Active Substance: INFLIXIMAB
     Route: 041
  186. INFLIXIMAB [Suspect]
     Active Substance: INFLIXIMAB
     Route: 041
  187. INFLIXIMAB [Suspect]
     Active Substance: INFLIXIMAB
     Route: 041
  188. INFLIXIMAB [Suspect]
     Active Substance: INFLIXIMAB
     Route: 042
  189. INFLIXIMAB [Suspect]
     Active Substance: INFLIXIMAB
     Route: 041
  190. INFLIXIMAB [Suspect]
     Active Substance: INFLIXIMAB
     Indication: Crohn^s disease
     Route: 041
  191. INFLIXIMAB [Suspect]
     Active Substance: INFLIXIMAB
     Indication: Colitis ulcerative
     Route: 042
  192. LEVOTHYROXINE SODIUM [Suspect]
     Active Substance: LEVOTHYROXINE SODIUM
     Indication: Product used for unknown indication
     Route: 065
  193. LISDEXAMFETAMINE DIMESYLATE [Suspect]
     Active Substance: LISDEXAMFETAMINE DIMESYLATE
     Indication: Product used for unknown indication
     Route: 065
  194. LISDEXAMFETAMINE DIMESYLATE [Suspect]
     Active Substance: LISDEXAMFETAMINE DIMESYLATE
     Indication: Product used for unknown indication
     Route: 065
  195. MEBEVERINE HYDROCHLORIDE [Suspect]
     Active Substance: MEBEVERINE HYDROCHLORIDE
     Indication: Product used for unknown indication
     Route: 065
  196. MEBEVERINE HYDROCHLORIDE [Suspect]
     Active Substance: MEBEVERINE HYDROCHLORIDE
     Route: 065
  197. MESALAMINE [Suspect]
     Active Substance: MESALAMINE
     Indication: Colitis ulcerative
     Route: 065
  198. MESALAMINE [Suspect]
     Active Substance: MESALAMINE
     Route: 065
  199. MESALAMINE [Suspect]
     Active Substance: MESALAMINE
     Route: 065
  200. MESALAMINE [Suspect]
     Active Substance: MESALAMINE
     Route: 065
  201. MESALAMINE [Suspect]
     Active Substance: MESALAMINE
     Route: 065
  202. MESALAMINE [Suspect]
     Active Substance: MESALAMINE
     Route: 065
  203. MESALAMINE [Suspect]
     Active Substance: MESALAMINE
     Route: 065
  204. MESALAMINE [Suspect]
     Active Substance: MESALAMINE
     Route: 065
  205. MESALAMINE [Suspect]
     Active Substance: MESALAMINE
     Route: 048
  206. MESALAMINE [Suspect]
     Active Substance: MESALAMINE
     Route: 065
  207. MESALAMINE [Suspect]
     Active Substance: MESALAMINE
     Route: 065
  208. MESALAMINE [Suspect]
     Active Substance: MESALAMINE
     Route: 065
  209. MESALAMINE [Suspect]
     Active Substance: MESALAMINE
     Route: 065
  210. MESALAMINE [Suspect]
     Active Substance: MESALAMINE
     Route: 065
  211. MESALAMINE [Suspect]
     Active Substance: MESALAMINE
     Route: 065
  212. MESALAMINE [Suspect]
     Active Substance: MESALAMINE
     Route: 048
  213. MESALAMINE [Suspect]
     Active Substance: MESALAMINE
     Indication: Colitis ulcerative
     Route: 065
  214. MESALAMINE [Suspect]
     Active Substance: MESALAMINE
     Indication: Colitis ulcerative
     Route: 065
  215. MESALAMINE [Suspect]
     Active Substance: MESALAMINE
     Route: 065
  216. MESALAMINE [Suspect]
     Active Substance: MESALAMINE
     Route: 048
  217. MESALAMINE [Suspect]
     Active Substance: MESALAMINE
     Route: 048
  218. MESALAMINE [Suspect]
     Active Substance: MESALAMINE
     Route: 065
  219. MESALAMINE [Suspect]
     Active Substance: MESALAMINE
     Route: 065
  220. MESALAMINE [Suspect]
     Active Substance: MESALAMINE
     Indication: Colitis ulcerative
     Route: 065
  221. MESALAMINE [Suspect]
     Active Substance: MESALAMINE
     Route: 065
  222. MESALAMINE [Suspect]
     Active Substance: MESALAMINE
     Route: 065
  223. MESALAMINE [Suspect]
     Active Substance: MESALAMINE
     Route: 065
  224. MESALAMINE [Suspect]
     Active Substance: MESALAMINE
     Route: 065
  225. MESALAMINE [Suspect]
     Active Substance: MESALAMINE
     Route: 048
  226. MESALAMINE [Suspect]
     Active Substance: MESALAMINE
     Route: 048
  227. MESALAMINE [Suspect]
     Active Substance: MESALAMINE
     Route: 065
  228. MESALAMINE [Suspect]
     Active Substance: MESALAMINE
     Route: 065
  229. MESALAMINE [Suspect]
     Active Substance: MESALAMINE
     Route: 065
  230. MESALAMINE [Suspect]
     Active Substance: MESALAMINE
     Route: 065
  231. MESALAMINE [Suspect]
     Active Substance: MESALAMINE
     Route: 065
  232. MESALAMINE [Suspect]
     Active Substance: MESALAMINE
     Route: 065
  233. MESALAMINE [Suspect]
     Active Substance: MESALAMINE
     Route: 065
  234. MESALAMINE [Suspect]
     Active Substance: MESALAMINE
     Route: 065
  235. MESALAMINE [Suspect]
     Active Substance: MESALAMINE
     Indication: Colitis ulcerative
     Route: 065
  236. MESALAMINE [Suspect]
     Active Substance: MESALAMINE
     Indication: Colitis ulcerative
     Route: 065
  237. MESALAMINE [Suspect]
     Active Substance: MESALAMINE
     Route: 065
  238. MESALAMINE [Suspect]
     Active Substance: MESALAMINE
     Route: 065
  239. MESALAMINE [Suspect]
     Active Substance: MESALAMINE
     Route: 065
  240. MESALAMINE [Suspect]
     Active Substance: MESALAMINE
     Route: 065
  241. MESALAMINE [Suspect]
     Active Substance: MESALAMINE
     Route: 065
  242. MESALAMINE [Suspect]
     Active Substance: MESALAMINE
     Route: 065
  243. MESALAMINE [Suspect]
     Active Substance: MESALAMINE
     Route: 065
  244. MESALAMINE [Suspect]
     Active Substance: MESALAMINE
     Route: 065
  245. MESALAMINE [Suspect]
     Active Substance: MESALAMINE
     Route: 065
  246. MESALAMINE [Suspect]
     Active Substance: MESALAMINE
     Route: 065
  247. MESALAMINE [Suspect]
     Active Substance: MESALAMINE
     Route: 065
  248. MESALAMINE [Suspect]
     Active Substance: MESALAMINE
     Indication: Colitis ulcerative
     Route: 048
  249. MESALAMINE [Suspect]
     Active Substance: MESALAMINE
     Indication: Colitis ulcerative
     Route: 048
  250. MESALAMINE [Suspect]
     Active Substance: MESALAMINE
     Route: 048
  251. MESALAMINE [Suspect]
     Active Substance: MESALAMINE
     Route: 065
  252. MESALAMINE [Suspect]
     Active Substance: MESALAMINE
     Indication: Colitis ulcerative
     Route: 065
  253. METFORMIN [Suspect]
     Active Substance: METFORMIN HYDROCHLORIDE
     Indication: Product used for unknown indication
     Route: 065
  254. METFORMIN [Suspect]
     Active Substance: METFORMIN HYDROCHLORIDE
     Indication: Product used for unknown indication
     Route: 065
  255. METHOTREXATE [Suspect]
     Active Substance: METHOTREXATE
     Indication: Colitis ulcerative
     Route: 065
  256. METHOTREXATE [Suspect]
     Active Substance: METHOTREXATE
     Route: 065
  257. METHOTREXATE [Suspect]
     Active Substance: METHOTREXATE
     Route: 065
  258. METHOTREXATE [Suspect]
     Active Substance: METHOTREXATE
     Route: 065
  259. METHOTREXATE [Suspect]
     Active Substance: METHOTREXATE
     Route: 065
  260. METHOTREXATE [Suspect]
     Active Substance: METHOTREXATE
     Route: 065
  261. METHOTREXATE [Suspect]
     Active Substance: METHOTREXATE
     Indication: Colitis ulcerative
  262. MESALAMINE [Suspect]
     Active Substance: MESALAMINE
     Indication: Colitis ulcerative
     Route: 065
  263. MESALAMINE [Suspect]
     Active Substance: MESALAMINE
     Route: 065
  264. MESALAMINE [Suspect]
     Active Substance: MESALAMINE
     Indication: Colitis ulcerative
     Route: 048
  265. OMEPRAZOLE [Suspect]
     Active Substance: OMEPRAZOLE
     Indication: Gastritis
     Route: 065
  266. OMEPRAZOLE [Suspect]
     Active Substance: OMEPRAZOLE
     Indication: Gastritis
     Route: 065
  267. OXYCODONE [Suspect]
     Active Substance: OXYCODONE
     Indication: Product used for unknown indication
     Route: 065
  268. PARA-AMINOSALICYLIC ACID [Suspect]
     Active Substance: AMINOSALICYLIC ACID
     Indication: Product used for unknown indication
     Route: 048
  269. PREDNISONE [Suspect]
     Active Substance: PREDNISONE
     Indication: Colitis ulcerative
     Route: 065
  270. PREDNISONE [Suspect]
     Active Substance: PREDNISONE
     Route: 065
  271. PREDNISONE [Suspect]
     Active Substance: PREDNISONE
     Route: 065
  272. PREDNISONE [Suspect]
     Active Substance: PREDNISONE
     Route: 065
  273. PREDNISONE [Suspect]
     Active Substance: PREDNISONE
     Route: 065
  274. PREDNISONE [Suspect]
     Active Substance: PREDNISONE
     Route: 065
  275. PREDNISONE [Suspect]
     Active Substance: PREDNISONE
     Indication: Colitis ulcerative
     Route: 065
  276. PREDNISONE [Suspect]
     Active Substance: PREDNISONE
     Route: 065
  277. PREDNISONE [Suspect]
     Active Substance: PREDNISONE
     Route: 065
  278. PREDNISONE [Suspect]
     Active Substance: PREDNISONE
     Route: 065
  279. PREDNISONE [Suspect]
     Active Substance: PREDNISONE
     Indication: Colitis ulcerative
     Route: 048
  280. ROSUVASTATIN [Suspect]
     Active Substance: ROSUVASTATIN
     Indication: Ill-defined disorder
     Route: 065
  281. ROSUVASTATIN [Suspect]
     Active Substance: ROSUVASTATIN
     Indication: Ill-defined disorder
  282. SULFASALAZINE [Suspect]
     Active Substance: SULFASALAZINE
     Indication: Colitis ulcerative
     Route: 065
  283. SULFASALAZINE [Suspect]
     Active Substance: SULFASALAZINE
     Indication: Arthritis
     Route: 065
  284. SULFASALAZINE [Suspect]
     Active Substance: SULFASALAZINE
     Route: 065
  285. SULFASALAZINE [Suspect]
     Active Substance: SULFASALAZINE
     Route: 048
  286. SULFASALAZINE [Suspect]
     Active Substance: SULFASALAZINE
     Route: 065
  287. SULFASALAZINE [Suspect]
     Active Substance: SULFASALAZINE
     Route: 065
  288. SULFASALAZINE [Suspect]
     Active Substance: SULFASALAZINE
     Route: 065
  289. SULFASALAZINE [Suspect]
     Active Substance: SULFASALAZINE
     Route: 065
  290. SULFASALAZINE [Suspect]
     Active Substance: SULFASALAZINE
     Route: 065
  291. SULFASALAZINE [Suspect]
     Active Substance: SULFASALAZINE
     Route: 065
  292. SULFASALAZINE [Suspect]
     Active Substance: SULFASALAZINE
     Route: 065
  293. SULFASALAZINE [Suspect]
     Active Substance: SULFASALAZINE
     Route: 065
  294. SULFASALAZINE [Suspect]
     Active Substance: SULFASALAZINE
     Route: 065
  295. SULFASALAZINE [Suspect]
     Active Substance: SULFASALAZINE
     Route: 065
  296. SULFASALAZINE [Suspect]
     Active Substance: SULFASALAZINE
     Indication: Colitis ulcerative
  297. SULFASALAZINE [Suspect]
     Active Substance: SULFASALAZINE
     Indication: Arthritis
  298. SULFASALAZINE [Suspect]
     Active Substance: SULFASALAZINE
  299. TOZINAMERAN [Suspect]
     Active Substance: TOZINAMERAN
     Indication: Product used for unknown indication
     Route: 065
  300. VITAMIN D3 [Suspect]
     Active Substance: CHOLECALCIFEROL
     Indication: Product used for unknown indication
     Route: 065
  301. VITAMIN D3 [Suspect]
     Active Substance: CHOLECALCIFEROL
     Indication: Product used for unknown indication
     Route: 065
  302. VYVANSE [Suspect]
     Active Substance: LISDEXAMFETAMINE DIMESYLATE
     Indication: Attention deficit hyperactivity disorder
     Route: 065
  303. WARFARIN [Suspect]
     Active Substance: WARFARIN
     Indication: Deep vein thrombosis
     Route: 065
  304. WARFARIN [Suspect]
     Active Substance: WARFARIN
     Route: 065
  305. WARFARIN [Suspect]
     Active Substance: WARFARIN
     Route: 065
  306. WARFARIN [Suspect]
     Active Substance: WARFARIN
     Route: 065
  307. WARFARIN [Suspect]
     Active Substance: WARFARIN
     Route: 065
  308. WARFARIN SODIUM [Suspect]
     Active Substance: WARFARIN SODIUM
     Indication: Deep vein thrombosis
     Route: 065
  309. WARFARIN SODIUM [Suspect]
     Active Substance: WARFARIN SODIUM
     Indication: Colitis ulcerative
     Route: 048
  310. WARFARIN SODIUM [Suspect]
     Active Substance: WARFARIN SODIUM
     Route: 065
  311. WARFARIN SODIUM [Suspect]
     Active Substance: WARFARIN SODIUM
     Route: 048
  312. WARFARIN SODIUM [Suspect]
     Active Substance: WARFARIN SODIUM
     Route: 065
  313. WARFARIN SODIUM [Suspect]
     Active Substance: WARFARIN SODIUM
     Route: 065
  314. WARFARIN SODIUM [Suspect]
     Active Substance: WARFARIN SODIUM
     Route: 065
  315. WARFARIN SODIUM [Suspect]
     Active Substance: WARFARIN SODIUM
     Route: 048
  316. WARFARIN SODIUM [Suspect]
     Active Substance: WARFARIN SODIUM
     Route: 048
  317. WARFARIN SODIUM [Suspect]
     Active Substance: WARFARIN SODIUM
     Route: 048
  318. ALGINIC ACID;ALUMINIUM HYDROXIDE;SODIUM ALGINATE;SODIUM BICARBONATE [Concomitant]
  319. ALGINIC ACID\ALUMINUM HYDROXIDE\MAGNESIUM TRISILICATE\SODIUM BICARBONA [Concomitant]
     Active Substance: ALGINIC ACID\ALUMINUM HYDROXIDE\MAGNESIUM TRISILICATE\SODIUM BICARBONATE
  320. AMLODIPINE BESYLATE [Concomitant]
     Active Substance: AMLODIPINE BESYLATE
     Indication: Product used for unknown indication
  321. ATORVASTATIN CALCIUM [Concomitant]
     Active Substance: ATORVASTATIN CALCIUM
     Indication: Product used for unknown indication
  322. BETNOVATE [Concomitant]
     Active Substance: BETAMETHASONE
     Indication: Product used for unknown indication
  323. BISOPROLOL [Concomitant]
     Active Substance: BISOPROLOL
     Indication: Ill-defined disorder
  324. BISOPROLOL [Concomitant]
     Active Substance: BISOPROLOL
     Indication: Dyscalculia
  325. CALCIUM CARBONATE;SODIUM ALGINATE;SODIUM BICARBONATE [Concomitant]
  326. CALCIUM CARBONATE\VITAMIN D [Concomitant]
     Active Substance: CALCIUM CARBONATE\VITAMIN D
     Indication: Product used for unknown indication
  327. CALCIUM CARBONATE\VITAMIN D [Concomitant]
     Active Substance: CALCIUM CARBONATE\VITAMIN D
  328. CITALOPRAM [Concomitant]
     Active Substance: CITALOPRAM
     Indication: Ill-defined disorder
  329. CLOBETASONE BUTYRATE [Concomitant]
     Active Substance: CLOBETASONE BUTYRATE
     Indication: Ill-defined disorder
  330. CLOBETASONE BUTYRATE [Concomitant]
     Active Substance: CLOBETASONE BUTYRATE
     Indication: Dyscalculia
  331. DORZOLAMIDE HYDROCHLORIDE [Concomitant]
     Active Substance: DORZOLAMIDE HYDROCHLORIDE
     Indication: Ill-defined disorder
  332. EMPAGLIFLOZIN [Concomitant]
     Active Substance: EMPAGLIFLOZIN
     Indication: Ill-defined disorder
  333. FESOTERODINE FUMARATE [Concomitant]
     Active Substance: FESOTERODINE FUMARATE
     Indication: Product used for unknown indication
  334. FOLIC ACID [Concomitant]
     Active Substance: FOLIC ACID
     Indication: Ill-defined disorder
  335. LANSOPRAZOLE [Concomitant]
     Active Substance: LANSOPRAZOLE
     Indication: Ill-defined disorder
  336. LATANOPROST [Concomitant]
     Active Substance: LATANOPROST
     Indication: Crohn^s disease
     Route: 065
  337. LATANOPROST [Concomitant]
     Active Substance: LATANOPROST
     Indication: Colitis ulcerative
  338. LYRICA [Concomitant]
     Active Substance: PREGABALIN
     Indication: Product used for unknown indication

REACTIONS (53)
  - Abdominal discomfort [Not Recovered/Not Resolved]
  - Bronchiectasis [Not Recovered/Not Resolved]
  - Alcohol poisoning [Not Recovered/Not Resolved]
  - Burns second degree [Not Recovered/Not Resolved]
  - Frequent bowel movements [Not Recovered/Not Resolved]
  - Steroid dependence [Not Recovered/Not Resolved]
  - Cardiac murmur [Not Recovered/Not Resolved]
  - Catarrh [Not Recovered/Not Resolved]
  - Impaired work ability [Not Recovered/Not Resolved]
  - Impaired quality of life [Not Recovered/Not Resolved]
  - Swollen tongue [Not Recovered/Not Resolved]
  - Rectal haemorrhage [Not Recovered/Not Resolved]
  - Colitis ulcerative [Not Recovered/Not Resolved]
  - Condition aggravated [Not Recovered/Not Resolved]
  - Somnolence [Not Recovered/Not Resolved]
  - Confusional state [Not Recovered/Not Resolved]
  - Stress [Not Recovered/Not Resolved]
  - Deep vein thrombosis [Not Recovered/Not Resolved]
  - Dysgeusia [Not Recovered/Not Resolved]
  - Eczema [Not Recovered/Not Resolved]
  - Gingival pain [Not Recovered/Not Resolved]
  - Haematochezia [Not Recovered/Not Resolved]
  - Hypopnoea [Not Recovered/Not Resolved]
  - Migraine [Not Recovered/Not Resolved]
  - Tubulointerstitial nephritis [Not Recovered/Not Resolved]
  - Nightmare [Not Recovered/Not Resolved]
  - Pain in extremity [Not Recovered/Not Resolved]
  - Palpitations [Not Recovered/Not Resolved]
  - Parosmia [Not Recovered/Not Resolved]
  - Rash [Not Recovered/Not Resolved]
  - Rhinitis [Not Recovered/Not Resolved]
  - Weight decreased [Not Recovered/Not Resolved]
  - Systemic lupus erythematosus [Not Recovered/Not Resolved]
  - Pyrexia [Not Recovered/Not Resolved]
  - Fatigue [Not Recovered/Not Resolved]
  - COVID-19 [Not Recovered/Not Resolved]
  - Vertigo [Not Recovered/Not Resolved]
  - Depression [Not Recovered/Not Resolved]
  - Tinnitus [Not Recovered/Not Resolved]
  - Arthritis [Not Recovered/Not Resolved]
  - Adverse drug reaction [Not Recovered/Not Resolved]
  - Headache [Not Recovered/Not Resolved]
  - Cerebrovascular accident [Not Recovered/Not Resolved]
  - Pain [Not Recovered/Not Resolved]
  - Pulmonary embolism [Not Recovered/Not Resolved]
  - Loss of personal independence in daily activities [Not Recovered/Not Resolved]
  - Accidental overdose [Not Recovered/Not Resolved]
  - Product use in unapproved indication [Not Recovered/Not Resolved]
  - Inappropriate schedule of product administration [Not Recovered/Not Resolved]
  - Drug ineffective [Not Recovered/Not Resolved]
  - Medication error [Not Recovered/Not Resolved]
  - Off label use [Not Recovered/Not Resolved]
  - Intentional product use issue [Not Recovered/Not Resolved]
